FAERS Safety Report 18146876 (Version 1)
Quarter: 2020Q3

REPORT INFORMATION
  Report Type: Spontaneous
  Country: US (occurrence: US)
  Receive Date: 20200813
  Receipt Date: 20200813
  Transmission Date: 20201103
  Serious: Yes (Other)
  Sender: FDA-Public Use
  Company Number: US-PFIZER INC-2020309646

PATIENT
  Age: 11 Year
  Sex: Male

DRUGS (7)
  1. ETOMIDATE. [Suspect]
     Active Substance: ETOMIDATE
     Dosage: 0.2 MG/KG
     Route: 042
  2. FENTANYL. [Concomitant]
     Active Substance: FENTANYL
     Indication: ANAESTHESIA
     Dosage: 0.005 MG/KG
     Route: 042
  3. NITROUS OXIDE. [Concomitant]
     Active Substance: NITROUS OXIDE
     Dosage: UNK, MAINTAINED WITH 70%
  4. ETOMIDATE. [Suspect]
     Active Substance: ETOMIDATE
     Indication: ANAESTHESIA
     Dosage: 0.3 MG/KG
     Route: 042
  5. SUCCINYLCHOLINE [SUXAMETHONIUM CHLORIDE] [Concomitant]
     Active Substance: SUCCINYLCHOLINE
     Dosage: 1.0 MG/KG
     Route: 042
  6. PANCURONIUM [Concomitant]
     Active Substance: PANCURONIUM
     Indication: ANAESTHESIA
     Dosage: 0.008 MG/KG
     Route: 042
  7. PANCURONIUM [Concomitant]
     Active Substance: PANCURONIUM
     Dosage: UNK, AS NEEDED
     Route: 042

REACTIONS (1)
  - Epilepsy [Unknown]
